FAERS Safety Report 25080765 (Version 1)
Quarter: 2025Q1

REPORT INFORMATION
  Report Type: Spontaneous
  Country: CA (occurrence: CA)
  Receive Date: 20250315
  Receipt Date: 20250315
  Transmission Date: 20250408
  Serious: Yes (Other)
  Sender: CELLTRION
  Company Number: CA-CELLTRION INC.-2025CA007454

PATIENT

DRUGS (6)
  1. STEQEYMA [Suspect]
     Active Substance: USTEKINUMAB-STBA
     Indication: Crohn^s disease
     Route: 042
     Dates: start: 20250109
  2. PREDNISONE [Concomitant]
     Active Substance: PREDNISONE
  3. CALCIUM\CHOLECALCIFEROL [Concomitant]
     Active Substance: CALCIUM\CHOLECALCIFEROL
  4. ADVIL COLD AND SINUS [Concomitant]
     Active Substance: IBUPROFEN\PSEUDOEPHEDRINE HYDROCHLORIDE
  5. CIPRALEX [Concomitant]
     Active Substance: ESCITALOPRAM OXALATE
  6. LORAZEPAM [Concomitant]
     Active Substance: LORAZEPAM

REACTIONS (1)
  - Crohn^s disease [Unknown]
